FAERS Safety Report 25235930 (Version 1)
Quarter: 2025Q2

REPORT INFORMATION
  Report Type: Spontaneous
  Country: US (occurrence: US)
  Receive Date: 20250424
  Receipt Date: 20250424
  Transmission Date: 20250717
  Serious: No
  Sender: MERCK SHARP & DOHME LLC
  Company Number: US-009507513-2279518

PATIENT
  Sex: Female

DRUGS (3)
  1. JANUVIA [Suspect]
     Active Substance: SITAGLIPTIN PHOSPHATE
     Indication: Glycosylated haemoglobin increased
     Dosage: 100MG/ONCE DAILY
     Route: 048
     Dates: start: 20250215
  2. CARVEDILOL [Concomitant]
     Active Substance: CARVEDILOL
  3. SUCRALFATE [Concomitant]
     Active Substance: SUCRALFATE

REACTIONS (2)
  - Psoriasis [Not Recovered/Not Resolved]
  - Genital rash [Not Recovered/Not Resolved]

NARRATIVE: CASE EVENT DATE: 20250101
